FAERS Safety Report 5572300-3 (Version None)
Quarter: 2007Q4

REPORT INFORMATION
  Report Type: 
  Country: None (occurrence: None)
  Receive Date: 20071221
  Receipt Date: 20071213
  Transmission Date: 20080405
  Serious: Yes (Other)
  Sender: FDA-Public Use
  Company Number: FR-PFIZER INC-2007105337

PATIENT
  Age: 62 Year
  Sex: Male

DRUGS (4)
  1. ALDACTONE [Suspect]
     Indication: HYPERTENSION
  2. ALDACTONE [Suspect]
     Indication: HYPERALDOSTERONISM
  3. VERAPAMIL [Suspect]
  4. ACETYLSALICYLATE LYSINE [Concomitant]
     Dosage: DAILY DOSE:160MG-FREQ:DAILY

REACTIONS (3)
  - POLYNEUROPATHY [None]
  - VITAMIN B1 DEFICIENCY [None]
  - VITAMIN B6 DEFICIENCY [None]
